FAERS Safety Report 7087117-0 (Version None)
Quarter: 2010Q4

REPORT INFORMATION
  Report Type: 
  Country: None (occurrence: None)
  Receive Date: 20101106
  Receipt Date: 20101026
  Transmission Date: 20110411
  Serious: No
  Sender: FDA-Public Use
  Company Number: US-WYE-H18368110

PATIENT
  Age: 87 Year
  Sex: Female
  Weight: 68.1 kg

DRUGS (4)
  1. ADVIL [Suspect]
     Indication: BACK PAIN
     Dosage: 1 TABLET X 1
     Route: 048
     Dates: start: 20101026, end: 20101026
  2. ATENOLOL [Concomitant]
  3. QUINAPRIL [Concomitant]
  4. TRAMADOL HCL [Suspect]
     Dosage: UNKNOWN
     Route: 048

REACTIONS (1)
  - FLUSHING [None]
